FAERS Safety Report 22170038 (Version 2)
Quarter: 2023Q2

REPORT INFORMATION
  Report Type: Spontaneous
  Country: US (occurrence: US)
  Receive Date: 20230404
  Receipt Date: 20230512
  Transmission Date: 20230721
  Serious: No
  Sender: FDA-Public Use
  Company Number: US-VIIV HEALTHCARE LIMITED-US2023AMR047752

PATIENT
  Age: 40 Year
  Sex: Male
  Weight: 78 kg

DRUGS (5)
  1. CABOTEGRAVIR [Suspect]
     Active Substance: CABOTEGRAVIR
     Indication: Prophylaxis against HIV infection
     Dosage: 3 ML
     Route: 030
     Dates: start: 202212, end: 20230309
  2. CABOTEGRAVIR [Suspect]
     Active Substance: CABOTEGRAVIR
  3. CABOTEGRAVIR [Suspect]
     Active Substance: CABOTEGRAVIR
  4. CABOTEGRAVIR [Suspect]
     Active Substance: CABOTEGRAVIR
     Indication: Prophylaxis against HIV infection
     Dosage: 3 ML
     Route: 030
     Dates: start: 202212, end: 20230309
  5. CABOTEGRAVIR [Suspect]
     Active Substance: CABOTEGRAVIR
     Indication: Prophylaxis against HIV infection
     Dosage: 3 ML
     Route: 030
     Dates: start: 202212, end: 20230309

REACTIONS (1)
  - Injection site pain [Recovered/Resolved]

NARRATIVE: CASE EVENT DATE: 20221208
